FAERS Safety Report 10469217 (Version 1)
Quarter: 2014Q3

REPORT INFORMATION
  Report Type: Spontaneous
  Country: US (occurrence: US)
  Receive Date: 20140923
  Receipt Date: 20140923
  Transmission Date: 20150326
  Serious: No
  Sender: FDA-Public Use
  Company Number: US-009507513-1409USA008685

PATIENT
  Sex: Female

DRUGS (1)
  1. ZETIA [Suspect]
     Active Substance: EZETIMIBE
     Dosage: UNK
     Route: 048

REACTIONS (2)
  - Muscle spasms [Unknown]
  - Blood pressure increased [Unknown]
